FAERS Safety Report 20815484 (Version 1)
Quarter: 2022Q2

REPORT INFORMATION
  Report Type: Spontaneous
  Country: US (occurrence: US)
  Receive Date: 20220511
  Receipt Date: 20220511
  Transmission Date: 20220721
  Serious: Yes (Hospitalization, Other)
  Sender: FDA-Public Use
  Company Number: US-BRISTOL-MYERS SQUIBB COMPANY-2022-031046

PATIENT
  Age: 60 Year
  Sex: Female

DRUGS (1)
  1. ABRAXANE [Suspect]
     Active Substance: PACLITAXEL
     Indication: Breast cancer metastatic
     Dosage: GIVEN ON DAY 1,DAY 8 AND DAY 15 EVERY 28 DAYS.
     Route: 065

REACTIONS (2)
  - Seizure [Unknown]
  - Off label use [Unknown]
